FAERS Safety Report 10160581 (Version 2)
Quarter: 2014Q2

REPORT INFORMATION
  Report Type: Spontaneous
  Country: PK (occurrence: PK)
  Receive Date: 20140508
  Receipt Date: 20140508
  Transmission Date: 20141212
  Serious: Yes (Other)
  Sender: FDA-Public Use
  Company Number: PHHY2014PK050225

PATIENT
  Age: 54 Year
  Sex: Female

DRUGS (7)
  1. SANDOSTATIN LAR [Suspect]
     Indication: FISTULA
     Dosage: 20 MG, UNK
     Dates: start: 20140219
  2. SANDOSTATIN LAR [Suspect]
     Indication: OFF LABEL USE
  3. SANDOSTATIN (OCTREOTIDE ACETATE) [Suspect]
     Dosage: UNK UKN, UNK
     Route: 058
  4. FLAGYL [Concomitant]
     Dosage: UNK UKN, UNK
     Route: 042
     Dates: start: 20140224, end: 20140310
  5. MOXIGET [Concomitant]
     Dosage: UNK UKN, UNK
     Route: 048
     Dates: start: 20140224, end: 20140310
  6. GRASIL [Concomitant]
     Dosage: UNK UKN, UNK
     Route: 048
     Dates: start: 20140224, end: 20140310
  7. ANTIBIOTICS [Concomitant]
     Dosage: UNK UKN, 2 DAYS

REACTIONS (1)
  - Enterocutaneous fistula [Unknown]
